FAERS Safety Report 9641798 (Version 7)
Quarter: 2021Q4

REPORT INFORMATION
  Report Type: Spontaneous
  Country: US (occurrence: US)
  Receive Date: 20131023
  Receipt Date: 20211224
  Transmission Date: 20220303
  Serious: Yes (Other)
  Sender: FDA-Public Use
  Company Number: US-SA-2013SA105273

PATIENT
  Age: 26 Year
  Sex: Female
  Weight: 51.247 kg

DRUGS (14)
  1. LUMIZYME [Suspect]
     Active Substance: ALGLUCOSIDASE ALFA
     Indication: Glycogen storage disorder
     Dosage: 1100 MG, QOW
     Route: 042
     Dates: start: 20130826
  2. LUMIZYME [Suspect]
     Active Substance: ALGLUCOSIDASE ALFA
     Dosage: 1100 MG, QOW
     Route: 042
     Dates: start: 20121011
  3. ACETAMINOPHEN [Concomitant]
     Active Substance: ACETAMINOPHEN
  4. SODIUM CHLORIDE [Concomitant]
     Active Substance: SODIUM CHLORIDE
  5. SODIUM CHLORIDE [Concomitant]
     Active Substance: SODIUM CHLORIDE
  6. STERILE WATER [Concomitant]
     Active Substance: WATER
  7. TRETINOIN [Concomitant]
     Active Substance: TRETINOIN
  8. EPINEPHRINE [Concomitant]
     Active Substance: EPINEPHRINE
     Dosage: UNK
  9. DOXYCYCLINE HYCLATE [Concomitant]
     Active Substance: DOXYCYCLINE HYCLATE
  10. LAMOTRIGINE [Concomitant]
     Active Substance: LAMOTRIGINE
  11. KEPPRA [Concomitant]
     Active Substance: LEVETIRACETAM
  12. BENADRYL [Concomitant]
     Active Substance: DIPHENHYDRAMINE HYDROCHLORIDE
  13. BACTRIM [Concomitant]
     Active Substance: SULFAMETHOXAZOLE\TRIMETHOPRIM
  14. KEFLEX [Concomitant]
     Active Substance: CEPHALEXIN

REACTIONS (6)
  - Seizure [Recovered/Resolved]
  - Fall [Unknown]
  - Head discomfort [Unknown]
  - Ear discomfort [Unknown]
  - Furuncle [Unknown]
  - Rhinorrhoea [Unknown]

NARRATIVE: CASE EVENT DATE: 20131001
